FAERS Safety Report 4128180 (Version 2)
Quarter: 2013Q2

REPORT INFORMATION
  Report Type: Spontaneous
  Country: US (occurrence: None)
  Receive Date: 20040213
  Receipt Date: 20120827
  Transmission Date: 20140414
  Serious: No
  Sender: FDA-Public Use
  Company Number: 350144

PATIENT
  Age: 53 Year
  Sex: Female

DRUGS (2)
  1. VICTOZA (LIRAGLUTIDE) SOLUTION FOR INJECTION, 6MG/ML [Suspect]
     Indication: TYPE 2 DIABETES MELLITUS
     Dosage: SUBCUTANEOUS
     Route: 058
  2. LANTUS (INSULIN GLARGINE) [Concomitant]

REACTIONS (2)
  - STAPHYLOCOCCAL INFECTION [None]
  - Malaise [None]
